FAERS Safety Report 6787766-0 (Version None)
Quarter: 2010Q2

REPORT INFORMATION
  Report Type: 
  Country: None (occurrence: None)
  Receive Date: 20100621
  Receipt Date: 20100414
  Transmission Date: 20101027
  Serious: Yes (Hospitalization)
  Sender: FDA-Public Use
  Company Number: 520538

PATIENT
  Age: 59 Year
  Sex: Female

DRUGS (6)
  1. IRINOTECAN HCL [Suspect]
     Indication: DRUG USE FOR UNKNOWN INDICATION
     Dosage: 142.4 MG MILLIGRAM(S), INTRAVENOUS
     Route: 042
     Dates: start: 20091229, end: 20091229
  2. FLUOROURACIL [Suspect]
     Indication: DRUG USE FOR UNKNOWN INDICATION
     Dosage: 3557 MG MILLIGRAM(S), INTRAVENOUS; INTRAVENOUS
     Route: 042
     Dates: start: 20091229, end: 20091229
  3. FLUOROURACIL [Suspect]
     Indication: DRUG USE FOR UNKNOWN INDICATION
     Dosage: 3557 MG MILLIGRAM(S), INTRAVENOUS; INTRAVENOUS
     Route: 042
     Dates: start: 20100126
  4. AVASTIN [Suspect]
     Indication: DRUG USE FOR UNKNOWN INDICATION
     Dosage: 350 MG MILLIGRAM(S),
     Dates: start: 20091230, end: 20091230
  5. (CALCIUM LEVOFOLINATE) [Concomitant]
  6. (ATENOLOL) [Concomitant]

REACTIONS (1)
  - ANGINA PECTORIS [None]
